FAERS Safety Report 8364793-3 (Version None)
Quarter: 2012Q2

REPORT INFORMATION
  Report Type: 
  Country: None (occurrence: None)
  Receive Date: 20120516
  Receipt Date: 20120514
  Transmission Date: 20120825
  Serious: Yes (Death)
  Sender: FDA-Public Use
  Company Number: CA-ROCHE-613825

PATIENT
  Age: 46 Year
  Sex: Male
  Weight: 83.536 kg

DRUGS (1)
  1. XELODA [Suspect]
     Indication: RECTAL CANCER
     Route: 048

REACTIONS (3)
  - CARDIAC DEATH [None]
  - CARDIOTOXICITY [None]
  - ARRHYTHMIA [None]
